FAERS Safety Report 19591762 (Version 2)
Quarter: 2021Q3

REPORT INFORMATION
  Report Type: Report from Study
  Country: US (occurrence: US)
  Receive Date: 20210721
  Receipt Date: 20210903
  Transmission Date: 20211014
  Serious: Yes (Death, Life-Threatening, Hospitalization, Other)
  Sender: FDA-Public Use
  Company Number: US-GILEAD-2021-0541150

PATIENT
  Age: 75 Year
  Sex: Female

DRUGS (2)
  1. REMDESIVIR. [Suspect]
     Active Substance: REMDESIVIR
     Indication: COVID-19
     Dosage: 100 MG
     Route: 042
     Dates: start: 20210513, end: 20210517
  2. NARSOPLIMAB. [Suspect]
     Active Substance: NARSOPLIMAB
     Indication: COVID-19
     Dosage: 370 MG, Q2WK
     Route: 042
     Dates: start: 20210513, end: 20210517

REACTIONS (1)
  - Sepsis [Not Recovered/Not Resolved]

NARRATIVE: CASE EVENT DATE: 20210517
